FAERS Safety Report 7023624-4 (Version None)
Quarter: 2010Q3

REPORT INFORMATION
  Report Type: 
  Country: None (occurrence: None)
  Receive Date: 20100930
  Receipt Date: 20100930
  Transmission Date: 20110219
  Serious: Yes (Other)
  Sender: FDA-Public Use
  Company Number: None

PATIENT
  Age: 4 Year
  Sex: Male
  Weight: 43 kg

DRUGS (1)
  1. SINGULAIR [Suspect]
     Indication: URTICARIA
     Dosage: 1 PILL ONCE AT NIGHT PO
     Route: 048
     Dates: start: 20100923, end: 20100928

REACTIONS (3)
  - ABNORMAL BEHAVIOUR [None]
  - ANGER [None]
  - SUICIDAL IDEATION [None]
